FAERS Safety Report 13737676 (Version 1)
Quarter: 2017Q3

REPORT INFORMATION
  Report Type: Report from Study
  Country: US (occurrence: US)
  Receive Date: 20170710
  Receipt Date: 20170710
  Transmission Date: 20171127
  Serious: Yes (Hospitalization, Other)
  Sender: FDA-Public Use
  Company Number: US-SAOL THERAPEUTICS-2016SAO00417

PATIENT
  Age: 47 Year
  Sex: Male

DRUGS (4)
  1. BACLOFEN. [Suspect]
     Active Substance: BACLOFEN
     Indication: MUSCLE SPASTICITY
     Dosage: 105.16 ?G, \DAY
     Route: 037
     Dates: start: 20160210
  2. MORPHINE [Suspect]
     Active Substance: MORPHINE
     Dosage: 2.103 MG, \DAY
     Route: 037
     Dates: start: 20160210
  3. BACLOFEN. [Suspect]
     Active Substance: BACLOFEN
     Indication: PARAPARESIS
     Dosage: 125.21 ?G, \DAY
     Route: 037
     Dates: start: 20160211
  4. MORPHINE [Suspect]
     Active Substance: MORPHINE
     Dosage: 2.504 MG, \DAY
     Route: 037
     Dates: start: 20160211

REACTIONS (4)
  - Withdrawal syndrome [Recovered/Resolved]
  - Headache [Recovered/Resolved]
  - Nausea [Recovered/Resolved]
  - Device failure [Recovered/Resolved]

NARRATIVE: CASE EVENT DATE: 20160210
